FAERS Safety Report 19965181 (Version 1)
Quarter: 2021Q4

REPORT INFORMATION
  Report Type: Spontaneous
  Country: TR (occurrence: TR)
  Receive Date: 20211018
  Receipt Date: 20211018
  Transmission Date: 20220303
  Serious: Yes (Other)
  Sender: FDA-Public Use
  Company Number: TR-LUPIN PHARMACEUTICALS INC.-2021-19780

PATIENT
  Age: 54 Year
  Sex: Female

DRUGS (14)
  1. METHYLPREDNISOLONE [Suspect]
     Active Substance: METHYLPREDNISOLONE
     Indication: Ulcerative keratitis
     Dosage: 1000 MILLIGRAM (PULSED)
     Route: 042
  2. METHYLPREDNISOLONE [Suspect]
     Active Substance: METHYLPREDNISOLONE
     Dosage: 1 MILLIGRAM/KILOGRAM (WITH GRADUAL TAPERING)
     Route: 048
  3. MOXIFLOXACIN [Suspect]
     Active Substance: MOXIFLOXACIN
     Indication: Antibiotic therapy
     Dosage: UNK UNK, BID
     Route: 065
  4. DOXYCYCLINE [Suspect]
     Active Substance: DOXYCYCLINE
     Indication: Antibiotic therapy
     Dosage: 200 MILLIGRAM
     Route: 065
  5. AZATHIOPRINE [Suspect]
     Active Substance: AZATHIOPRINE
     Indication: Ulcerative keratitis
     Dosage: 100 MILLIGRAM
     Route: 065
  6. AZATHIOPRINE [Suspect]
     Active Substance: AZATHIOPRINE
     Dosage: 150 MILLIGRAM, QD
     Route: 065
  7. VITAMIN C [Suspect]
     Active Substance: ASCORBIC ACID
     Indication: Ulcerative keratitis
     Dosage: 1000 MILLIGRAM
     Route: 065
  8. CYCLOSPORINE [Suspect]
     Active Substance: CYCLOSPORINE
     Indication: Ulcerative keratitis
     Dosage: UNK UNK, QID
     Route: 061
  9. PREDNISOLONE ACETATE [Suspect]
     Active Substance: PREDNISOLONE ACETATE
     Indication: Ulcerative keratitis
     Dosage: UNK UNK, QID
     Route: 061
  10. ACETYLCYSTEINE [Suspect]
     Active Substance: ACETYLCYSTEINE
     Indication: Ulcerative keratitis
     Dosage: UNK UNK, BID
     Route: 061
  11. HYALURONATE SODIUM\TREHALOSE [Suspect]
     Active Substance: HYALURONATE SODIUM\TREHALOSE
     Indication: Ulcerative keratitis
     Dosage: UNK UNK, QID
     Route: 061
  12. VALACYCLOVIR [Suspect]
     Active Substance: VALACYCLOVIR HYDROCHLORIDE
     Indication: Antiviral treatment
     Dosage: 1500 MILLIGRAM (SYSTEMIC)
     Route: 065
  13. ISONIAZID [Concomitant]
     Active Substance: ISONIAZID
     Indication: Prophylaxis
     Dosage: UNK
     Route: 065
  14. REMICADE [Concomitant]
     Active Substance: INFLIXIMAB
     Indication: Ulcerative keratitis
     Dosage: 5 MILLIGRAM/KILOGRAM (AFTER 0-, 2-, AND 6-WEEK DOSES, MONTHLY INFUSION)
     Route: 042

REACTIONS (1)
  - Drug ineffective [Unknown]
